FAERS Safety Report 11797051 (Version 3)
Quarter: 2015Q4

REPORT INFORMATION
  Report Type: Spontaneous
  Country: US (occurrence: US)
  Receive Date: 20151203
  Receipt Date: 20151208
  Transmission Date: 20160305
  Serious: Yes (Other)
  Sender: FDA-Public Use
  Company Number: US-PFIZER INC-2015410401

PATIENT
  Age: 83 Year
  Sex: Female
  Weight: 65.77 kg

DRUGS (1)
  1. LYRICA [Suspect]
     Active Substance: PREGABALIN
     Indication: NEURALGIA
     Dosage: 50 MG, 2X/DAY (ONE IN MORNING ONE AT NIGHT)
     Route: 048

REACTIONS (3)
  - Femur fracture [Unknown]
  - Pelvic fracture [Unknown]
  - Pain [Unknown]
